FAERS Safety Report 4555830-2 (Version None)
Quarter: 2005Q1

REPORT INFORMATION
  Report Type: 
  Country: None (occurrence: None)
  Receive Date: 20050112
  Receipt Date: 20040629
  Transmission Date: 20050727
  Serious: Yes (Other)
  Sender: FDA-Public Use
  Company Number: 200418804BWH

PATIENT
  Age: 56 Year
  Sex: Male
  Weight: 113.3993 kg

DRUGS (3)
  1. CIPROFLOXACIN HYDROCHLORIDE [Suspect]
     Indication: INFECTION PROPHYLAXIS
     Dosage: 1000 MG, TOTAL DAILY, ORAL
     Route: 048
     Dates: start: 20040625
  2. CIPROFLOXACIN HYDROCHLORIDE [Suspect]
     Indication: SURGERY
     Dosage: 1000 MG, TOTAL DAILY, ORAL
     Route: 048
     Dates: start: 20040625
  3. VICODIN [Concomitant]

REACTIONS (10)
  - ANXIETY [None]
  - DIZZINESS [None]
  - HYPERSENSITIVITY [None]
  - MIGRAINE [None]
  - NASAL OEDEMA [None]
  - STOMACH DISCOMFORT [None]
  - SWELLING FACE [None]
  - URTICARIA [None]
  - VISUAL FIELD DEFECT [None]
  - VOMITING [None]
